FAERS Safety Report 20933809 (Version 1)
Quarter: 2022Q2

REPORT INFORMATION
  Report Type: Spontaneous
  Country: US (occurrence: None)
  Receive Date: 20220607
  Receipt Date: 20220607
  Transmission Date: 20220720
  Serious: Yes (Hospitalization)
  Sender: FDA-Public Use
  Company Number: None

PATIENT
  Sex: Male

DRUGS (21)
  1. MYCOPHENOLIC ACID [Suspect]
     Active Substance: MYCOPHENOLIC ACID
     Indication: Product used for unknown indication
     Dosage: TAKE 1 TABLET BY MOUTH 2 TIMES DAY
     Route: 048
     Dates: start: 20210223
  2. AMLODIPINE TAB [Concomitant]
  3. CYCLOBENZAPR TAB [Concomitant]
  4. AMLODIPINE TAB [Concomitant]
  5. CYCLOBENZAPR TAB [Concomitant]
  6. DEPO-MEDROL INJ [Concomitant]
  7. GABAPENTIN [Concomitant]
     Active Substance: GABAPENTIN
  8. GLIPIZIDE TAB [Concomitant]
  9. ISOSORB MONO TAB [Concomitant]
  10. LABETAOLOL TAB [Concomitant]
  11. LANSOPRAZOLE [Concomitant]
  12. LANTUS SOLOS INJ [Concomitant]
  13. MYCOPHENOLAT TAB [Concomitant]
  14. PARICALCITOL [Concomitant]
     Active Substance: PARICALCITOL
  15. PEG-3350/KCL SOL/SODIUM [Concomitant]
  16. PREDNISONE [Concomitant]
     Active Substance: PREDNISONE
  17. ROSUVASTATIN [Concomitant]
     Active Substance: ROSUVASTATIN
  18. TACROLIMUS [Concomitant]
     Active Substance: TACROLIMUS
  19. TACROLIMUS [Concomitant]
     Active Substance: TACROLIMUS
  20. TACROLIMUS A [Concomitant]
  21. VITAMIN D CAP [Concomitant]

REACTIONS (1)
  - Hospitalisation [None]
